FAERS Safety Report 8772126 (Version 1)
Quarter: 2012Q4

REPORT INFORMATION
  Report Type: Report from Study
  Country: MX (occurrence: MX)
  Receive Date: 20120906
  Receipt Date: 20120906
  Transmission Date: 20130627
  Serious: Yes (Life-Threatening, Hospitalization)
  Sender: FDA-Public Use
  Company Number: MX-JNJFOC-20120813121

PATIENT
  Sex: Male
  Weight: 68 kg

DRUGS (18)
  1. INTELENCE [Suspect]
     Indication: HIV INFECTION
     Route: 048
     Dates: start: 20090806, end: 20120822
  2. PREZISTA [Suspect]
     Indication: HIV INFECTION
     Route: 048
     Dates: start: 20090806, end: 20120822
  3. TOPAMAX [Suspect]
     Indication: PRODUCT USED FOR UNKNOWN INDICATION
     Route: 048
     Dates: start: 20120813, end: 20120822
  4. SIBELIUM [Suspect]
     Indication: MIGRAINE
     Route: 048
     Dates: start: 20120813, end: 20120822
  5. CEFTRIAXONE [Concomitant]
     Route: 042
     Dates: start: 20120822
  6. VONTROL [Concomitant]
     Route: 048
     Dates: start: 20120813
  7. TEMPRA [Concomitant]
     Indication: PAIN
     Route: 048
     Dates: start: 20120813, end: 20120822
  8. PHENYTOIN [Concomitant]
     Route: 048
     Dates: start: 20120813
  9. PROFENID [Concomitant]
     Indication: PAIN
     Route: 048
     Dates: start: 20120813, end: 20120822
  10. SUPRADOL [Concomitant]
     Indication: PAIN
     Route: 065
     Dates: start: 20120813, end: 20120823
  11. PANTOPRAZOLE [Concomitant]
     Route: 042
     Dates: start: 20120822
  12. SERC [Concomitant]
     Route: 048
     Dates: start: 20120822
  13. CITICOLINE [Concomitant]
     Route: 042
     Dates: start: 20120823
  14. TRENTAL [Concomitant]
     Route: 065
     Dates: start: 20120823
  15. ERGOTAMINE [Concomitant]
     Indication: MIGRAINE
     Route: 048
     Dates: start: 20120817, end: 20120822
  16. RITONAVIR [Concomitant]
     Route: 048
     Dates: start: 20090806, end: 20120822
  17. TRUVADA [Concomitant]
     Route: 065
     Dates: start: 20090806, end: 20120822
  18. RINELON [Concomitant]

REACTIONS (30)
  - Head injury [Unknown]
  - Cerebral haemorrhage [Unknown]
  - Ear haemorrhage [Unknown]
  - Ischaemia [Unknown]
  - Migraine [Unknown]
  - Peripheral ischaemia [None]
  - Fall [None]
  - Accident [None]
  - Vertigo [None]
  - Skull fracture [None]
  - Subarachnoid haemorrhage [None]
  - Brain oedema [None]
  - Contusion [None]
  - Cyanosis [None]
  - Pulse absent [None]
  - Hypothermia [None]
  - Muscular weakness [None]
  - Pain in extremity [None]
  - Pain in extremity [None]
  - Drug interaction [None]
  - Leukocytosis [None]
  - Bandaemia [None]
  - C-reactive protein increased [None]
  - Peripheral arterial occlusive disease [None]
  - Alanine aminotransferase increased [None]
  - Aspartate aminotransferase increased [None]
  - Gamma-glutamyltransferase increased [None]
  - Liver disorder [None]
  - Necrosis [None]
  - Arterial occlusive disease [None]
